FAERS Safety Report 4617462-7 (Version None)
Quarter: 2005Q1

REPORT INFORMATION
  Report Type: 
  Country: None (occurrence: None)
  Receive Date: 20050322
  Receipt Date: 20050317
  Transmission Date: 20050727
  Serious: Yes (Other)
  Sender: FDA-Public Use
  Company Number: 004408

PATIENT
  Age: 61 Year
  Sex: Female

DRUGS (4)
  1. MEDROXYPROGESTERONE ACETATE [Suspect]
     Dates: start: 19900101, end: 20030101
  2. PROVERA [Suspect]
     Dates: start: 19900101, end: 20030101
  3. PREMARIN [Suspect]
     Dates: start: 19900101, end: 19900101
  4. ESTRACE [Suspect]
     Dates: start: 19900101, end: 20030101

REACTIONS (1)
  - BREAST CANCER FEMALE [None]
